FAERS Safety Report 11759167 (Version 2)
Quarter: 2016Q1

REPORT INFORMATION
  Report Type: Spontaneous
  Country: US (occurrence: US)
  Receive Date: 20151120
  Receipt Date: 20160125
  Transmission Date: 20160525
  Serious: No
  Sender: FDA-Public Use
  Company Number: US-JNJFOC-20151103622

PATIENT
  Sex: Female
  Weight: 58.06 kg

DRUGS (6)
  1. WOMENS ROGAINE [Suspect]
     Active Substance: MINOXIDIL
     Route: 061
  2. WOMENS ROGAINE [Suspect]
     Active Substance: MINOXIDIL
     Indication: ALOPECIA
     Dosage: 0.5 CAPFUL
     Route: 061
  3. CALCIUM [Concomitant]
     Active Substance: CALCIUM
     Indication: OSTEOPOROSIS PROPHYLAXIS
     Dosage: USING SINCE 20 YEARS
     Route: 065
  4. EVISTA [Concomitant]
     Active Substance: RALOXIFENE HYDROCHLORIDE
     Indication: OSTEOPOROSIS PROPHYLAXIS
     Dosage: USING SINCE 20 YEARS
     Route: 065
  5. ASPIRIN. [Concomitant]
     Active Substance: ASPIRIN
     Indication: MIGRAINE
     Dosage: USING SINCE 6 YEARS
     Route: 065
  6. MULTI VITAMIN [Concomitant]
     Active Substance: VITAMINS
     Indication: ROUTINE HEALTH MAINTENANCE
     Dosage: USING SINCE 25 YEARS
     Route: 065

REACTIONS (2)
  - Hair colour changes [Not Recovered/Not Resolved]
  - Incorrect drug administration duration [Unknown]
